FAERS Safety Report 24670321 (Version 1)
Quarter: 2024Q4

REPORT INFORMATION
  Report Type: Spontaneous
  Country: US (occurrence: US)
  Receive Date: 20241127
  Receipt Date: 20241127
  Transmission Date: 20250115
  Serious: No
  Sender: TEVA
  Company Number: US-TEVA-VS-3263887

PATIENT
  Sex: Male

DRUGS (2)
  1. AUSTEDO XR [Suspect]
     Active Substance: DEUTETRABENAZINE
     Indication: Tardive dyskinesia
     Dosage: ABOUT THREE WEEKS NOW
     Route: 065
     Dates: start: 20240501
  2. AUSTEDO XR [Suspect]
     Active Substance: DEUTETRABENAZINE
     Indication: Tardive dyskinesia
     Dosage: ABOUT 3-4 WEEKS AGO
     Route: 065

REACTIONS (2)
  - Drug ineffective [Unknown]
  - Insomnia [Unknown]
